FAERS Safety Report 19783004 (Version 1)
Quarter: 2021Q3

REPORT INFORMATION
  Report Type: Report from Study
  Country: US (occurrence: US)
  Receive Date: 20210902
  Receipt Date: 20210902
  Transmission Date: 20211014
  Serious: Yes (Other)
  Sender: FDA-Public Use
  Company Number: US-ASTRAZENECA-2021A706975

PATIENT
  Age: 3970 Week
  Sex: Female

DRUGS (1)
  1. BRILINTA [Suspect]
     Active Substance: TICAGRELOR
     Route: 048
     Dates: start: 20210820, end: 20210822

REACTIONS (1)
  - Feeling jittery [Recovering/Resolving]

NARRATIVE: CASE EVENT DATE: 20210820
